FAERS Safety Report 6000579-2 (Version None)
Quarter: 2008Q4

REPORT INFORMATION
  Report Type: 
  Country: None (occurrence: None)
  Receive Date: 20081215
  Receipt Date: 20081201
  Transmission Date: 20090506
  Serious: Yes (Death)
  Sender: FDA-Public Use
  Company Number: DE-ROCHE-559062

PATIENT
  Age: 50 Year
  Sex: Female
  Weight: 67.4 kg

DRUGS (1)
  1. CAPECITABINE [Suspect]
     Dosage: DOSE:2150 MG, DAY 1-14, Q21D AS PER PROTOCOL REQUESTED: 2000 MG, DAY1-14, Q21D
     Route: 065
     Dates: start: 20060123, end: 20060528

REACTIONS (2)
  - DEATH [None]
  - OVERDOSE [None]
